FAERS Safety Report 4750981-1 (Version None)
Quarter: 2005Q3

REPORT INFORMATION
  Report Type: 
  Country: None (occurrence: None)
  Receive Date: 20050822
  Receipt Date: 20050811
  Transmission Date: 20060218
  Serious: Yes (Other)
  Sender: FDA-Public Use
  Company Number: 2005113901

PATIENT
  Age: 58 Year
  Sex: Male
  Weight: 108.8633 kg

DRUGS (2)
  1. SUDAFED 12 HOUR [Suspect]
     Indication: SINUSITIS
     Dosage: 1 TAB EVERY 12-16 HOURS, ORAL
     Route: 048
  2. ANACIN (ACETYLSALICYLIC ACID, CAFFEINE) [Concomitant]

REACTIONS (2)
  - HEADACHE [None]
  - NERVOUSNESS [None]
